FAERS Safety Report 7353699-4 (Version None)
Quarter: 2011Q1

REPORT INFORMATION
  Report Type: 
  Country: None (occurrence: None)
  Receive Date: 20110315
  Receipt Date: 20091122
  Transmission Date: 20110831
  Serious: Yes (Death, Hospitalization, Other)
  Sender: FDA-Public Use
  Company Number: US-BAYER-200940448NA

PATIENT
  Sex: Male

DRUGS (7)
  1. TRASYLOL [Suspect]
     Indication: CORONARY ARTERY BYPASS
     Route: 042
     Dates: start: 20070228
  2. LIPITOR [Concomitant]
     Dosage: 20 MG DAILY
     Route: 048
  3. LOPRESSOR [Concomitant]
     Dosage: 50 MG TWICE DAILY
     Route: 048
  4. AVAPRO [Concomitant]
     Dosage: 300 MG DAILY
     Route: 048
  5. DILTIAZEM [Concomitant]
     Dosage: 240 MG DAILY
     Route: 048
  6. PLAVIX [Concomitant]
     Dosage: 75 MG DAILY
     Route: 048
  7. ASPIRIN [Concomitant]
     Dosage: 325 MG DAILY
     Route: 048

REACTIONS (13)
  - EMOTIONAL DISTRESS [None]
  - DEATH [None]
  - ANHEDONIA [None]
  - PAIN [None]
  - INJURY [None]
  - STRESS [None]
  - UNEVALUABLE EVENT [None]
  - FEAR [None]
  - RENAL IMPAIRMENT [None]
  - RENAL INJURY [None]
  - RENAL FAILURE [None]
  - MULTI-ORGAN FAILURE [None]
  - ANXIETY [None]
